FAERS Safety Report 10147135 (Version 3)
Quarter: 2014Q2

REPORT INFORMATION
  Report Type: Report from Study
  Country: US (occurrence: US)
  Receive Date: 20140501
  Receipt Date: 20140515
  Transmission Date: 20141212
  Serious: Yes (Death)
  Sender: FDA-Public Use
  Company Number: PHEH2014US008597

PATIENT
  Sex: Male

DRUGS (2)
  1. GILENYA [Suspect]
     Indication: MULTIPLE SCLEROSIS
     Dosage: 1 DF, QD
     Route: 048
     Dates: start: 201012
  2. PROVIGIL//MODAFINIL [Concomitant]
     Indication: FATIGUE
     Dosage: 1 DF, DAY
     Route: 048

REACTIONS (1)
  - Death [Fatal]
